FAERS Safety Report 5351909-6 (Version None)
Quarter: 2007Q2

REPORT INFORMATION
  Report Type: 
  Country: None (occurrence: None)
  Receive Date: 20070609
  Receipt Date: 20070529
  Transmission Date: 20071010
  Serious: Yes (Other)
  Sender: FDA-Public Use
  Company Number: GB-ABBOTT-07P-167-0369779-00

PATIENT
  Age: 18 Year

DRUGS (3)
  1. EPILIM [Suspect]
     Indication: EPILEPSY
     Route: 048
     Dates: start: 20040207
  2. EPILIM [Suspect]
     Dates: end: 20070215
  3. ORLISTAT [Interacting]
     Indication: DRUG USE FOR UNKNOWN INDICATION

REACTIONS (2)
  - CONVULSION [None]
  - DRUG INTERACTION [None]
